FAERS Safety Report 21308624 (Version 2)
Quarter: 2022Q4

REPORT INFORMATION
  Report Type: Spontaneous
  Country: JP (occurrence: JP)
  Receive Date: 20220908
  Receipt Date: 20221020
  Transmission Date: 20230113
  Serious: Yes (Other)
  Sender: FDA-Public Use
  Company Number: JP-UCBJ-CD202209083UCBPHAPROD

PATIENT
  Age: 34 Year
  Sex: Male

DRUGS (5)
  1. VIMPAT [Suspect]
     Active Substance: LACOSAMIDE
     Indication: Epilepsy
     Dosage: 50 MILLIGRAM, 2X/DAY (BID)
     Route: 048
  2. VIMPAT [Suspect]
     Active Substance: LACOSAMIDE
     Dosage: 100 MILLIGRAM, ONCE DAILY (QD)
     Route: 048
     Dates: start: 20220715, end: 20220903
  3. LEVETIRACETAM [Suspect]
     Active Substance: LEVETIRACETAM
     Indication: Product used for unknown indication
     Dosage: UNK
     Route: 048
  4. ACYCLOVIR [Concomitant]
     Active Substance: ACYCLOVIR
     Indication: Product used for unknown indication
  5. PROGRAF [Concomitant]
     Active Substance: TACROLIMUS
     Indication: Product used for unknown indication

REACTIONS (4)
  - Amylase increased [Not Recovered/Not Resolved]
  - Epilepsy [Unknown]
  - Pyrexia [Recovered/Resolved]
  - Off label use [Unknown]

NARRATIVE: CASE EVENT DATE: 20220715
